FAERS Safety Report 7507037-4 (Version None)
Quarter: 2011Q2

REPORT INFORMATION
  Report Type: 
  Country: None (occurrence: None)
  Receive Date: 20110526
  Receipt Date: 20110518
  Transmission Date: 20111010
  Serious: Yes (Disabling)
  Sender: FDA-Public Use
  Company Number: US-CEPHALON-2011001612

PATIENT
  Sex: Female

DRUGS (1)
  1. NUVIGIL [Suspect]
     Route: 048

REACTIONS (4)
  - DIARRHOEA [None]
  - INTESTINAL FUNCTIONAL DISORDER [None]
  - SKIN WARM [None]
  - ERYTHEMA [None]
